FAERS Safety Report 14833613 (Version 1)
Quarter: 2018Q2

REPORT INFORMATION
  Report Type: Spontaneous
  Country: US (occurrence: US)
  Receive Date: 20180413
  Receipt Date: 20180413
  Transmission Date: 20180711
  Serious: Yes (Other)
  Sender: FDA-Public Use
  Company Number: None

PATIENT
  Age: 92 Year
  Sex: Female
  Weight: 66.6 kg

DRUGS (9)
  1. CALCIUM + D [Concomitant]
     Active Substance: CALCIUM\VITAMIN D
  2. LIPITOR [Concomitant]
     Active Substance: ATORVASTATIN CALCIUM
  3. BENICAR [Concomitant]
     Active Substance: OLMESARTAN MEDOXOMIL
  4. WARFARIN [Concomitant]
     Active Substance: WARFARIN
  5. FISH OIL [Concomitant]
     Active Substance: FISH OIL
  6. ERIVEDGE [Suspect]
     Active Substance: VISMODEGIB
     Indication: SKIN CANCER
     Route: 048
     Dates: start: 20170616, end: 20180413
  7. CARTIA XT [Concomitant]
     Active Substance: DILTIAZEM HYDROCHLORIDE
  8. FUROSEMIDE. [Concomitant]
     Active Substance: FUROSEMIDE
  9. KLOR-CON [Concomitant]
     Active Substance: POTASSIUM CHLORIDE

REACTIONS (1)
  - Weight decreased [None]
